FAERS Safety Report 4821985-5 (Version None)
Quarter: 2005Q4

REPORT INFORMATION
  Report Type: 
  Country: None (occurrence: None)
  Receive Date: 20051107
  Receipt Date: 20050922
  Transmission Date: 20060501
  Serious: Yes (Hospitalization)
  Sender: FDA-Public Use
  Company Number: US-BRISTOL-MYERS SQUIBB COMPANY-13119789

PATIENT
  Age: 42 Year
  Sex: Male

DRUGS (3)
  1. EFAVIRENZ [Suspect]
  2. STAVUDINE [Suspect]
  3. LAMIVUDINE [Suspect]

REACTIONS (7)
  - ANOREXIA [None]
  - DYSPNOEA [None]
  - HISTOPLASMOSIS DISSEMINATED [None]
  - IMMUNE RECONSTITUTION SYNDROME [None]
  - PYREXIA [None]
  - RASH [None]
  - RASH ERYTHEMATOUS [None]
